FAERS Safety Report 9266188 (Version 2)
Quarter: 2013Q2

REPORT INFORMATION
  Report Type: Report from Study
  Country: DE (occurrence: DE)
  Receive Date: 20130502
  Receipt Date: 20130621
  Transmission Date: 20140414
  Serious: Yes (Other)
  Sender: FDA-Public Use
  Company Number: DE-ROCHE-1220063

PATIENT
  Age: 65 Year
  Sex: Female

DRUGS (1)
  1. ZELBORAF [Suspect]
     Indication: PRODUCT USED FOR UNKNOWN INDICATION
     Route: 065

REACTIONS (3)
  - Cutaneous sarcoidosis [Unknown]
  - Palmar-plantar erythrodysaesthesia syndrome [Unknown]
  - Hyperkeratosis [Unknown]
